FAERS Safety Report 7712581-0 (Version None)
Quarter: 2011Q3

REPORT INFORMATION
  Report Type: 
  Country: None (occurrence: None)
  Receive Date: 20110826
  Receipt Date: 20110824
  Transmission Date: 20111222
  Serious: Yes (Life-Threatening, Other)
  Sender: FDA-Public Use
  Company Number: JP-B.I. PHARMACEUTICALS,INC./RIDGEFIELD-2011-BP-18110NB

PATIENT
  Sex: Female
  Weight: 33 kg

DRUGS (9)
  1. PURSENNID [Concomitant]
     Route: 048
  2. PRAMIPEXOLE DIHYDROCHLORIDE [Suspect]
     Indication: PARKINSON'S DISEASE
     Dosage: 0.75 MG
     Route: 048
     Dates: start: 20090101, end: 20110718
  3. SEPAZON [Suspect]
     Dosage: 1.5 MG
     Route: 048
     Dates: start: 20110401, end: 20110718
  4. SINGULAIR [Concomitant]
     Dosage: 10 MG
     Route: 048
  5. MUCOSTA [Concomitant]
     Dosage: 300 MG
     Route: 048
  6. EBASTEL OD [Concomitant]
     Dosage: 10 MG
     Route: 048
  7. LENDORMIN D TABLETS [Concomitant]
     Dosage: 0.25 MG
     Route: 048
  8. ACETAMINOPHEN [Concomitant]
     Route: 048
  9. MENEST [Concomitant]
     Indication: PARKINSON'S DISEASE
     Dosage: 300 MG
     Route: 048
     Dates: start: 20090101

REACTIONS (5)
  - PNEUMONIA STAPHYLOCOCCAL [None]
  - SEPTIC SHOCK [None]
  - RESPIRATORY ARREST [None]
  - STUPOR [None]
  - PNEUMONIA ASPIRATION [None]
